FAERS Safety Report 8314633-3 (Version None)
Quarter: 2012Q2

REPORT INFORMATION
  Report Type: 
  Country: None (occurrence: None)
  Receive Date: 20120426
  Receipt Date: 20120418
  Transmission Date: 20120825
  Serious: Yes (Other)
  Sender: FDA-Public Use
  Company Number: US-BAYER-2011-075243

PATIENT
  Age: 39 Year
  Sex: Female

DRUGS (5)
  1. CIPROFLOXACIN HCL [Concomitant]
     Dosage: 500 MG, BID
     Dates: start: 20090602
  2. DIFLUCAN [Concomitant]
     Dosage: 150 MG, QD
     Dates: start: 20090602
  3. YAZ [Suspect]
     Dosage: UNK
  4. DROSPIRENONE AND ETHINYL ESTRADIOL [Suspect]
  5. YASMIN [Suspect]

REACTIONS (3)
  - DEEP VEIN THROMBOSIS [None]
  - THROMBOSIS [None]
  - INJURY [None]
